FAERS Safety Report 24636634 (Version 1)
Quarter: 2024Q4

REPORT INFORMATION
  Report Type: Spontaneous
  Country: IE (occurrence: IE)
  Receive Date: 20241119
  Receipt Date: 20241119
  Transmission Date: 20250115
  Serious: Yes (Congenital Anomaly)
  Sender: NOVARTIS
  Company Number: IE-002147023-NVSC2024IE221493

PATIENT
  Age: 40 Year
  Sex: Female

DRUGS (8)
  1. LETROZOLE [Suspect]
     Active Substance: LETROZOLE
     Indication: Therapeutic ovarian suppression
     Dosage: 2.5 MG, Q24H
     Route: 048
     Dates: start: 202103
  2. LETROZOLE [Suspect]
     Active Substance: LETROZOLE
     Indication: Breast cancer
  3. VALSARTAN [Suspect]
     Active Substance: VALSARTAN
     Indication: Hypertension
     Dosage: 80 MG, Q24H
     Route: 065
     Dates: end: 20211117
  4. LABETALOL [Suspect]
     Active Substance: LABETALOL
     Indication: Hypertension
     Dosage: UNK
     Route: 065
     Dates: start: 20211117
  5. GOSERELIN [Suspect]
     Active Substance: GOSERELIN
     Indication: Therapeutic ovarian suppression
     Dosage: UNK
     Route: 067
     Dates: start: 20210730, end: 20210730
  6. GOSERELIN [Suspect]
     Active Substance: GOSERELIN
     Dosage: UNK
     Route: 067
     Dates: start: 20210827, end: 20210827
  7. GOSERELIN [Suspect]
     Active Substance: GOSERELIN
     Dosage: UNK
     Route: 067
     Dates: start: 20210925, end: 20210925
  8. GOSERELIN [Suspect]
     Active Substance: GOSERELIN
     Dosage: UNK
     Route: 067
     Dates: start: 20211022, end: 20211022

REACTIONS (3)
  - Oligohydramnios [Unknown]
  - Stillbirth [Unknown]
  - Maternal exposure during pregnancy [Unknown]

NARRATIVE: CASE EVENT DATE: 20211122
